FAERS Safety Report 19268986 (Version 1)
Quarter: 2021Q2

REPORT INFORMATION
  Report Type: Spontaneous
  Country: US (occurrence: US)
  Receive Date: 20210517
  Receipt Date: 20210517
  Transmission Date: 20210717
  Serious: Yes (Other)
  Sender: FDA-Public Use
  Company Number: US-FRESENIUS KABI-FK202104985

PATIENT
  Age: 48 Year
  Sex: Male

DRUGS (1)
  1. AMIODARONE HCL (MANUFACTURER UNKNOWN) [Suspect]
     Active Substance: AMIODARONE HYDROCHLORIDE
     Indication: VENTRICULAR FIBRILLATION
     Route: 065

REACTIONS (2)
  - Hyperthyroidism [Recovered/Resolved]
  - Thyrotoxic periodic paralysis [Recovered/Resolved]
